FAERS Safety Report 5208366-X (Version None)
Quarter: 2006Q4

REPORT INFORMATION
  Report Type: 
  Country: None (occurrence: None)
  Receive Date: 20061027
  Receipt Date: 20051019
  Transmission Date: 20070319
  Serious: Yes (Other)
  Sender: FDA-Public Use
  Company Number: HQWYE192824OCT05

PATIENT
  Age: 65 Year
  Sex: Female
  Weight: 53.57 kg

DRUGS (1)
  1. PREMARIN [Suspect]
     Indication: HORMONE REPLACEMENT THERAPY
     Dosage: 1.25 MG ONCE DAILY, ORAL
     Route: 048
     Dates: start: 20050718, end: 20050928

REACTIONS (1)
  - CEREBROVASCULAR ACCIDENT [None]
